FAERS Safety Report 5476033-3 (Version None)
Quarter: 2007Q4

REPORT INFORMATION
  Report Type: 
  Country: None (occurrence: None)
  Receive Date: 20071003
  Receipt Date: 20070926
  Transmission Date: 20080405
  Serious: Yes (Other)
  Sender: FDA-Public Use
  Company Number: PHNU2007DE02775

PATIENT
  Age: 47 Year
  Sex: Male
  Weight: 65 kg

DRUGS (2)
  1. DICLOFENAC SODIUM [Suspect]
     Indication: MUSCLE SPASMS
     Dates: start: 20070717
  2. DICLOFENAC SODIUM [Suspect]
     Dosage: 2 DF, ONCE/SINGLE
     Dates: start: 20070717, end: 20070717

REACTIONS (5)
  - ACCOMMODATION DISORDER [None]
  - IRIS VASCULAR DISORDER [None]
  - LACRIMATION INCREASED [None]
  - PHOTOPHOBIA [None]
  - PUPIL FIXED [None]
